FAERS Safety Report 4965527-2 (Version None)
Quarter: 2006Q1

REPORT INFORMATION
  Report Type: 
  Country: None (occurrence: None)
  Receive Date: 20060201
  Receipt Date: 20051207
  Transmission Date: 20060701
  Serious: No
  Sender: FDA-Public Use
  Company Number: 2005PV005567

PATIENT
  Age: 64 Year
  Sex: Male

DRUGS (8)
  1. BYETTA [Suspect]
     Indication: DIABETES MELLITUS NON-INSULIN-DEPENDENT
     Dosage: 10 MCG;BID;10 MCG;QPM;SC;5 MCG;QAM;SC; 10 MCG;BID;SC
     Route: 058
     Dates: start: 20050101, end: 20050101
  2. BYETTA [Suspect]
     Indication: DIABETES MELLITUS NON-INSULIN-DEPENDENT
     Dosage: 10 MCG;BID;10 MCG;QPM;SC;5 MCG;QAM;SC; 10 MCG;BID;SC
     Route: 058
     Dates: start: 20050101, end: 20050101
  3. BYETTA [Suspect]
     Indication: DIABETES MELLITUS NON-INSULIN-DEPENDENT
     Dosage: 10 MCG;BID;10 MCG;QPM;SC;5 MCG;QAM;SC; 10 MCG;BID;SC
     Route: 058
     Dates: start: 20050101
  4. ACTOS [Concomitant]
  5. GLUCOPHAGE [Concomitant]
  6. GLYBURIDE [Concomitant]
  7. LEVONTHYROXINE [Concomitant]
  8. LISINOPRIL [Concomitant]

REACTIONS (2)
  - BLOOD GLUCOSE INCREASED [None]
  - NAUSEA [None]
